FAERS Safety Report 6164373-4 (Version None)
Quarter: 2009Q2

REPORT INFORMATION
  Report Type: 
  Country: None (occurrence: None)
  Receive Date: 20090422
  Receipt Date: 20090417
  Transmission Date: 20091009
  Serious: Yes (Death)
  Sender: FDA-Public Use
  Company Number: FR-AMGEN-UK334992

PATIENT
  Sex: Female
  Weight: 55 kg

DRUGS (9)
  1. ROMIPLOSTIM [Suspect]
     Indication: IDIOPATHIC THROMBOCYTOPENIC PURPURA
     Route: 058
     Dates: start: 20090126, end: 20090209
  2. DIGOXIN [Concomitant]
     Route: 065
  3. FUROSEMIDE [Concomitant]
     Route: 065
  4. DIFFU K [Concomitant]
     Route: 065
  5. PREDNISONE [Concomitant]
     Route: 065
  6. ZOPICLONE [Concomitant]
     Route: 065
  7. AMLODIPINE BESYLATE [Concomitant]
     Route: 065
  8. NEXIUM [Concomitant]
     Route: 065
  9. CELLCEPT [Concomitant]
     Route: 065

REACTIONS (1)
  - CARDIO-RESPIRATORY ARREST [None]
